FAERS Safety Report 12815463 (Version 1)
Quarter: 2016Q4

REPORT INFORMATION
  Report Type: Spontaneous
  Country: CA (occurrence: CA)
  Receive Date: 20161005
  Receipt Date: 20161005
  Transmission Date: 20170207
  Serious: Yes (Disabling, Other)
  Sender: FDA-Public Use
  Company Number: PHHY2016CA136353

PATIENT

DRUGS (2)
  1. GLIVEC [Suspect]
     Active Substance: IMATINIB MESYLATE
     Indication: PRODUCT USED FOR UNKNOWN INDICATION
     Route: 065
  2. NILOTINIB [Suspect]
     Active Substance: NILOTINIB
     Indication: PRODUCT USED FOR UNKNOWN INDICATION
     Route: 065

REACTIONS (7)
  - Graft versus host disease [Unknown]
  - Cardiovascular disorder [Unknown]
  - Malaise [Unknown]
  - Thrombosis [Unknown]
  - Peripheral vascular disorder [Unknown]
  - Coronary artery disease [Unknown]
  - Limb discomfort [Unknown]
